FAERS Safety Report 12919972 (Version 1)
Quarter: 2016Q4

REPORT INFORMATION
  Report Type: Spontaneous
  Country: US (occurrence: US)
  Receive Date: 20161104
  Receipt Date: 20161104
  Transmission Date: 20170207
  Serious: Yes (Disabling)
  Sender: FDA-Public Use
  Company Number: None

PATIENT
  Sex: Male
  Weight: 111.6 kg

DRUGS (6)
  1. MVI [Concomitant]
     Active Substance: VITAMINS
  2. BENZATROPIN (COGENTIN) [Concomitant]
  3. AMARYL [Concomitant]
     Active Substance: GLIMEPIRIDE
  4. RISPERDAL [Suspect]
     Active Substance: RISPERIDONE
     Indication: PRODUCT USED FOR UNKNOWN INDICATION
     Dosage: ?          QUANTITY:1 TABLET(S);?
     Route: 048
  5. FISH OIL [Concomitant]
     Active Substance: FISH OIL
  6. ALPRAZOLAM. [Concomitant]
     Active Substance: ALPRAZOLAM

REACTIONS (2)
  - Myocardial infarction [None]
  - Testis cancer [None]
